FAERS Safety Report 21760212 (Version 2)
Quarter: 2023Q2

REPORT INFORMATION
  Report Type: Spontaneous
  Country: US (occurrence: US)
  Receive Date: 20221221
  Receipt Date: 20230411
  Transmission Date: 20230721
  Serious: No
  Sender: FDA-Public Use
  Company Number: US-TEVA-2022-US-2838130

PATIENT
  Age: 59 Year
  Sex: Female

DRUGS (4)
  1. PROAIR RESPICLICK [Suspect]
     Active Substance: ALBUTEROL SULFATE
     Indication: Product used for unknown indication
     Route: 065
  2. PROAIR RESPICLICK [Suspect]
     Active Substance: ALBUTEROL SULFATE
  3. PROAIR HFA [Suspect]
     Active Substance: ALBUTEROL SULFATE
     Indication: Product used for unknown indication
     Dosage: 90 MCG/DOSE
     Route: 065
  4. PROAIR HFA [Suspect]
     Active Substance: ALBUTEROL SULFATE

REACTIONS (2)
  - Dyspnoea [Unknown]
  - Product use issue [Unknown]
